FAERS Safety Report 4765167-4 (Version None)
Quarter: 2005Q3

REPORT INFORMATION
  Report Type: 
  Country: None (occurrence: None)
  Receive Date: 20050907
  Receipt Date: 20050825
  Transmission Date: 20060218
  Serious: Yes (Hospitalization)
  Sender: FDA-Public Use
  Company Number: WAES 0508USA04022

PATIENT
  Age: 66 Year
  Sex: Male
  Weight: 87.9978 kg

DRUGS (4)
  1. HYZAAR [Suspect]
     Indication: METABOLIC SYNDROME
     Dosage: 1 TABLET /DAILY/PO
     Route: 048
     Dates: start: 20040813
  2. TARKA [Suspect]
     Indication: METABOLIC SYNDROME
     Dosage: 1 TABLET/DAILY/PO
     Route: 048
     Dates: start: 20040813
  3. ASPIRIN [Concomitant]
  4. CLONIDINE [Concomitant]

REACTIONS (1)
  - CORONARY ARTERY DISEASE [None]
